FAERS Safety Report 8962606 (Version 1)
Quarter: 2012Q4

REPORT INFORMATION
  Report Type: 
  Country: US (occurrence: US)
  Receive Date: 20121213
  Receipt Date: 20121213
  Transmission Date: 20130627
  Serious: No
  Sender: FDA-Public Use
  Company Number: US-PFIZER INC-2012315369

PATIENT
  Age: 23 Year
  Sex: Male
  Weight: 72.56 kg

DRUGS (2)
  1. CHANTIX [Suspect]
     Indication: SMOKING CESSATION THERAPY
     Dosage: 0.5 mg, 1x/day
     Route: 048
     Dates: start: 201211, end: 201211
  2. CHANTIX [Suspect]
     Dosage: 0.5 mg, 2x/day
     Route: 048
     Dates: start: 201211, end: 20121128

REACTIONS (3)
  - Vomiting [Recovered/Resolved]
  - Insomnia [Recovered/Resolved]
  - Nausea [Recovered/Resolved]
